FAERS Safety Report 17239183 (Version 1)
Quarter: 2020Q1

REPORT INFORMATION
  Report Type: Spontaneous
  Country: US (occurrence: US)
  Receive Date: 20200106
  Receipt Date: 20200106
  Transmission Date: 20200409
  Serious: Yes (Other)
  Sender: FDA-Public Use
  Company Number: US-ABBVIE-19K-163-2758932-00

PATIENT
  Age: 51 Year
  Sex: Male

DRUGS (2)
  1. AZACITIDINE. [Concomitant]
     Active Substance: AZACITIDINE
     Indication: PRODUCT USED FOR UNKNOWN INDICATION
  2. VENCLEXTA [Suspect]
     Active Substance: VENETOCLAX
     Indication: ACUTE MYELOID LEUKAEMIA
     Route: 048

REACTIONS (4)
  - Headache [Not Recovered/Not Resolved]
  - Acute myeloid leukaemia recurrent [Not Recovered/Not Resolved]
  - Dysarthria [Not Recovered/Not Resolved]
  - Eye pain [Not Recovered/Not Resolved]
